FAERS Safety Report 9412722 (Version 2)
Quarter: 2013Q3

REPORT INFORMATION
  Report Type: Spontaneous
  Country: US (occurrence: US)
  Receive Date: 20130722
  Receipt Date: 20130725
  Transmission Date: 20140515
  Serious: Yes (Other)
  Sender: FDA-Public Use
  Company Number: US-PFIZER INC-2013208445

PATIENT
  Sex: Male

DRUGS (2)
  1. ZYVOX [Suspect]
     Dosage: UNK
  2. TRAMADOL HYDROCHLORIDE [Interacting]
     Dosage: UNK

REACTIONS (2)
  - Drug interaction [Recovered/Resolved]
  - Serotonin syndrome [Recovered/Resolved]
